FAERS Safety Report 8772400 (Version 1)
Quarter: 2012Q4

REPORT INFORMATION
  Report Type: 
  Country: US (occurrence: US)
  Receive Date: 20120906
  Receipt Date: 20120906
  Transmission Date: 20130627
  Serious: Yes (Hospitalization)
  Sender: FDA-Public Use
  Company Number: US-BAYER-2012-091586

PATIENT
  Age: 37 Year
  Sex: Female
  Weight: 63.49 kg

DRUGS (6)
  1. YAZ [Suspect]
     Indication: CONTRACEPTION
  2. GIANVI [Suspect]
  3. YASMIN [Suspect]
  4. VICODIN [Concomitant]
     Indication: PAIN
     Dosage: 5 mg-500 mg 1 tab every 4 hours, 1-2 tablets q 4 hrs prn
     Route: 048
  5. NAPROXEN [Concomitant]
     Indication: PAIN
     Dosage: 500 mg 1 tablet, 2 times a day, as need
     Route: 048
  6. ASA [Concomitant]
     Dosage: 81 mg, QD
     Route: 048

REACTIONS (1)
  - Pulmonary embolism [None]
